FAERS Safety Report 9147924 (Version 4)
Quarter: 2013Q3

REPORT INFORMATION
  Report Type: Spontaneous
  Country: US (occurrence: US)
  Receive Date: 20130307
  Receipt Date: 20130909
  Transmission Date: 20140515
  Serious: Yes (Hospitalization, Other)
  Sender: FDA-Public Use
  Company Number: US-009507513-1303USA002857

PATIENT
  Age: 63 Year
  Sex: Male

DRUGS (4)
  1. PEGINTRON [Suspect]
     Indication: HEPATITIS C
     Dosage: VIAL
     Dates: start: 20130226, end: 20130422
  2. PEGINTRON [Suspect]
     Dosage: REDIPEN
     Dates: start: 20130423, end: 20130531
  3. REBETOL [Suspect]
     Indication: HEPATITIS C
     Dosage: UNK
     Route: 048
     Dates: start: 20130226, end: 20130531
  4. VICTRELIS [Suspect]
     Indication: HEPATITIS C
     Dosage: UNK
     Route: 048
     Dates: start: 20130327, end: 20130531

REACTIONS (16)
  - Transfusion [Unknown]
  - Haemoglobin decreased [Recovering/Resolving]
  - Tremor [Unknown]
  - Mental disorder [Unknown]
  - Dysgeusia [Unknown]
  - Influenza like illness [Unknown]
  - Nausea [Unknown]
  - Fatigue [Unknown]
  - Rash [Unknown]
  - Decreased appetite [Unknown]
  - Thrombocytopenia [Unknown]
  - Platelet count decreased [Unknown]
  - Rash erythematous [Unknown]
  - Asthenia [Unknown]
  - Decreased appetite [Unknown]
  - Dysgeusia [Unknown]
